FAERS Safety Report 6305378-X (Version None)
Quarter: 2009Q3

REPORT INFORMATION
  Report Type: 
  Country: None (occurrence: None)
  Receive Date: 20090810
  Receipt Date: 20090810
  Transmission Date: 20100115
  Serious: No
  Sender: FDA-Public Use
  Company Number: None

PATIENT
  Age: 51 Year
  Sex: Female
  Weight: 86.1834 kg

DRUGS (2)
  1. LISINOPRIL [Suspect]
     Indication: BLOOD PRESSURE INCREASED
     Dosage: 5MG DAILY ORAL
     Route: 048
     Dates: start: 20020101
  2. HYDROCHLOROTHIAZIDE [Suspect]
     Indication: BLOOD PRESSURE INCREASED
     Dosage: 25MG DAILY ORAL
     Route: 048
     Dates: start: 20020101

REACTIONS (4)
  - COUGH [None]
  - FATIGUE [None]
  - HEADACHE [None]
  - PHOTOSENSITIVITY REACTION [None]
